FAERS Safety Report 4883805-2 (Version None)
Quarter: 2006Q1

REPORT INFORMATION
  Report Type: 
  Country: None (occurrence: None)
  Receive Date: 20060113
  Receipt Date: 20051228
  Transmission Date: 20060701
  Serious: No
  Sender: FDA-Public Use
  Company Number: US200512004350

PATIENT
  Age: 34 Year
  Sex: Female

DRUGS (2)
  1. CYMBALTA [Suspect]
     Indication: ANXIETY
     Dosage: 30 MG DAILY 1/D ORAL
     Route: 048
     Dates: start: 20051214
  2. XANAX [Concomitant]

REACTIONS (1)
  - HEPATIC ENZYME INCREASED [None]
